FAERS Safety Report 6206859-X (Version None)
Quarter: 2009Q2

REPORT INFORMATION
  Report Type: 
  Country: None (occurrence: None)
  Receive Date: 20090528
  Receipt Date: 20090204
  Transmission Date: 20091009
  Serious: No
  Sender: FDA-Public Use
  Company Number: US-AMGEN-US331954

PATIENT
  Sex: Female

DRUGS (13)
  1. NPLATE [Suspect]
     Indication: IDIOPATHIC THROMBOCYTOPENIC PURPURA
     Route: 065
     Dates: start: 20081201
  2. GLUCOPHAGE [Concomitant]
     Route: 065
  3. DIAZEPAM [Concomitant]
     Route: 065
  4. SKELAXIN [Concomitant]
     Route: 065
  5. CYTOMEL [Concomitant]
     Route: 065
  6. LEXAPRO [Concomitant]
     Route: 065
  7. METHADONE [Concomitant]
     Route: 065
  8. PROVIGIL [Concomitant]
     Route: 065
  9. LEVOTHYROXINE SODIUM [Concomitant]
     Route: 065
  10. PROPRANOLOL HYDROCHLORIDE [Concomitant]
     Route: 065
  11. REQUIP [Concomitant]
     Route: 065
  12. NEXIUM [Concomitant]
     Route: 065
  13. LYRICA [Concomitant]
     Route: 065

REACTIONS (2)
  - ARTHRALGIA [None]
  - BONE PAIN [None]
